FAERS Safety Report 16102853 (Version 10)
Quarter: 2020Q4

REPORT INFORMATION
  Report Type: Report from Study
  Country: FR (occurrence: FR)
  Receive Date: 20190321
  Receipt Date: 20201005
  Transmission Date: 20210113
  Serious: Yes (Death, Hospitalization, Other)
  Sender: FDA-Public Use
  Company Number: FR-EISAI MEDICAL RESEARCH-EC-2019-053837

PATIENT
  Age: 77 Year
  Sex: Female
  Weight: 55 kg

DRUGS (26)
  1. DAFALGAN CODEINE [Concomitant]
     Active Substance: ACETAMINOPHEN\CODEINE PHOSPHATE
     Dates: start: 20181007
  2. UVEDOSE [Concomitant]
     Active Substance: CHOLECALCIFEROL
     Dates: start: 20181007
  3. LENVATINIB [Suspect]
     Active Substance: LENVATINIB
     Indication: ENDOMETRIAL CANCER
     Dosage: FLUCTUATED DOSES
     Route: 048
     Dates: start: 20181128, end: 20190204
  4. LENVATINIB [Suspect]
     Active Substance: LENVATINIB
     Route: 048
     Dates: start: 20190220, end: 20190312
  5. PEMBROLIZUMAB. [Suspect]
     Active Substance: PEMBROLIZUMAB
     Route: 041
     Dates: start: 20190220, end: 20190220
  6. INEXIUM [Concomitant]
     Active Substance: ESOMEPRAZOLE
     Dates: start: 201802
  7. PANTOPRAZOLE [Concomitant]
     Active Substance: PANTOPRAZOLE
     Dates: start: 20190116
  8. SMECTA [Concomitant]
     Active Substance: MONTMORILLONITE
     Dates: start: 20190125, end: 20190402
  9. KARDEGIC [Concomitant]
     Active Substance: ASPIRIN DL-LYSINE
     Dates: start: 20181007, end: 20190620
  10. CETIRIZINE HYDROCHLORIDE. [Concomitant]
     Active Substance: CETIRIZINE HYDROCHLORIDE
     Dates: start: 20181007
  11. CALCIDOSE VITAMINE D [Concomitant]
     Active Substance: CALCIUM\CHOLECALCIFEROL
     Dates: start: 20190116
  12. FUNGIZONE [Concomitant]
     Active Substance: AMPHOTERICIN B
     Dates: start: 20190116, end: 20190220
  13. PEMBROLIZUMAB. [Suspect]
     Active Substance: PEMBROLIZUMAB
     Route: 041
     Dates: start: 20190313
  14. HYZAAR [Concomitant]
     Active Substance: HYDROCHLOROTHIAZIDE\LOSARTAN POTASSIUM
     Dates: start: 20181116
  15. BROMAZEPAM [Concomitant]
     Active Substance: BROMAZEPAM
     Dates: start: 20181007
  16. ACETAMINOPHEN. [Concomitant]
     Active Substance: ACETAMINOPHEN
     Dates: start: 20181007
  17. IMOVANE [Concomitant]
     Active Substance: ZOPICLONE
     Dates: start: 20190121, end: 20190306
  18. ARESTAL [Concomitant]
     Active Substance: LOPERAMIDE OXIDE
     Dates: start: 20181007
  19. PEMBROLIZUMAB. [Suspect]
     Active Substance: PEMBROLIZUMAB
     Indication: ENDOMETRIAL CANCER
     Route: 041
     Dates: start: 20181128, end: 20190130
  20. EZETROL [Concomitant]
     Active Substance: EZETIMIBE
     Dates: start: 20181007
  21. FLUVASTATIN SODIUM. [Concomitant]
     Active Substance: FLUVASTATIN SODIUM
     Dates: start: 20181007
  22. SPASFON [Concomitant]
     Dates: start: 20190116, end: 20190402
  23. TITANOREINE [Concomitant]
     Active Substance: CARRAGEENAN\TITANIUM\ZINC
     Dates: start: 20190116, end: 20190404
  24. CARDENSIEL [Concomitant]
     Active Substance: BISOPROLOL FUMARATE
     Dates: start: 20181116, end: 20190620
  25. PRIMPERAN [Concomitant]
     Active Substance: METOCLOPRAMIDE HYDROCHLORIDE
     Dates: start: 20190116
  26. TIORFAN [Concomitant]
     Active Substance: RACECADOTRIL
     Dates: start: 20190125, end: 20190402

REACTIONS (3)
  - Urogenital fistula [Not Recovered/Not Resolved]
  - General physical health deterioration [Not Recovered/Not Resolved]
  - Acute kidney injury [Recovered/Resolved]

NARRATIVE: CASE EVENT DATE: 20190228
